FAERS Safety Report 7282757-8 (Version None)
Quarter: 2011Q1

REPORT INFORMATION
  Report Type: 
  Country: None (occurrence: None)
  Receive Date: 20110209
  Receipt Date: 20110128
  Transmission Date: 20110831
  Serious: Yes (Hospitalization)
  Sender: FDA-Public Use
  Company Number: US-JNJFOC-20110200327

PATIENT
  Sex: Female
  Weight: 61.24 kg

DRUGS (4)
  1. PREDNISONE [Concomitant]
     Indication: INFLAMMATION
  2. SIMPONI [Suspect]
     Indication: RHEUMATOID ARTHRITIS
     Route: 058
  3. FOSAMAX [Concomitant]
     Indication: BONE DENSITY ABNORMAL
  4. HYDROCHLOROTHIAZIDE [Concomitant]
     Indication: BLOOD PRESSURE

REACTIONS (3)
  - DRUG DOSE OMISSION [None]
  - DEVICE MALFUNCTION [None]
  - PNEUMONIA [None]
